FAERS Safety Report 9416636 (Version 1)
Quarter: 2013Q3

REPORT INFORMATION
  Report Type: Spontaneous
  Country: FR (occurrence: None)
  Receive Date: 20130719
  Receipt Date: 20130719
  Transmission Date: 20140515
  Serious: Yes (Life-Threatening, Other)
  Sender: FDA-Public Use
  Company Number: MC201300374

PATIENT
  Age: 65 Year
  Sex: Male

DRUGS (4)
  1. ANGIOMAX, ANGIOX (BIVALIRUDIN) INJECTION [Suspect]
     Route: 040
     Dates: start: 20130613, end: 20130613
  2. EFIENT [Suspect]
     Dosage: 6 TABS, ORAL
     Route: 048
     Dates: start: 20130613
  3. KARDEGIC (ACETYLSALICYLATE LYSINE) [Suspect]
     Dosage: 300 MG, PACKET OF POWDER FOR ORAL SOLUTION, ORAL
     Dates: start: 20130613, end: 20130613
  4. REOPRO (ABCIXIMAB) [Suspect]
     Route: 040
     Dates: start: 20130613, end: 20130613

REACTIONS (2)
  - Bronchial haemorrhage [None]
  - Platelet count decreased [None]
